FAERS Safety Report 18208123 (Version 2)
Quarter: 2020Q3

REPORT INFORMATION
  Report Type: Report from Study
  Country: None (occurrence: US)
  Receive Date: 20200828
  Receipt Date: 20200908
  Transmission Date: 20201103
  Serious: No
  Sender: FDA-Public Use
  Company Number: US-BIOVITRUM-2020US4539

PATIENT
  Age: 59 Year
  Sex: Female

DRUGS (9)
  1. DIGOXIN. [Concomitant]
     Active Substance: DIGOXIN
  2. COUMADIN [Concomitant]
     Active Substance: WARFARIN SODIUM
  3. KINERET [Suspect]
     Active Substance: ANAKINRA
     Indication: GOUT
     Dosage: ONCE DAILY FOR 3 DAYS AS NEEDED
     Route: 058
     Dates: start: 20200811, end: 20200813
  4. SILDENAFIL. [Concomitant]
     Active Substance: SILDENAFIL
  5. TORSEMIDE. [Concomitant]
     Active Substance: TORSEMIDE
  6. SPIRONOLACTONE. [Concomitant]
     Active Substance: SPIRONOLACTONE
  7. METOPROLOL. [Concomitant]
     Active Substance: METOPROLOL
  8. ALLOPURINOL. [Concomitant]
     Active Substance: ALLOPURINOL
  9. COLCHICINE. [Concomitant]
     Active Substance: COLCHICINE

REACTIONS (7)
  - Injection site erythema [Unknown]
  - Contusion [Unknown]
  - Injection site mass [Recovering/Resolving]
  - Off label use [Recovered/Resolved]
  - Asthma [Unknown]
  - Injection site pain [Unknown]
  - Injection site pruritus [Unknown]

NARRATIVE: CASE EVENT DATE: 20200811
